FAERS Safety Report 5490606-3 (Version None)
Quarter: 2007Q4

REPORT INFORMATION
  Report Type: 
  Country: None (occurrence: None)
  Receive Date: 20071019
  Receipt Date: 20071009
  Transmission Date: 20080405
  Serious: Yes (Life-Threatening, Hospitalization)
  Sender: FDA-Public Use
  Company Number: JP-BAYER-200715834GDS

PATIENT
  Age: 85 Year
  Sex: Female

DRUGS (3)
  1. ASPIRIN [Suspect]
     Indication: CEREBRAL INFARCTION
     Route: 065
  2. PANALDINE (TICLOPIDINE) [Suspect]
     Indication: CEREBRAL INFARCTION
     Route: 065
  3. TICLOPIDINE HCL [Concomitant]
     Indication: CEREBRAL INFARCTION
     Route: 048

REACTIONS (4)
  - INTESTINAL HAEMORRHAGE [None]
  - LARGE INTESTINAL ULCER [None]
  - MELAENA [None]
  - SHOCK HAEMORRHAGIC [None]
